FAERS Safety Report 17527565 (Version 2)
Quarter: 2020Q2

REPORT INFORMATION
  Report Type: Spontaneous
  Country: US (occurrence: US)
  Receive Date: 20200311
  Receipt Date: 20200428
  Transmission Date: 20200713
  Serious: No
  Sender: FDA-Public Use
  Company Number: US-JNJFOC-20200306993

PATIENT
  Age: 67 Year
  Sex: Male

DRUGS (10)
  1. INVOKAMET XR [Suspect]
     Active Substance: CANAGLIFLOZIN\METFORMIN HYDROCHLORIDE
     Dosage: 150-1000 MG,
     Route: 048
  2. NAPROXEN. [Concomitant]
     Active Substance: NAPROXEN
     Indication: PAIN
  3. RAMIPRIL. [Concomitant]
     Active Substance: RAMIPRIL
  4. PRAVASTATIN. [Concomitant]
     Active Substance: PRAVASTATIN
  5. CARVELOL [Concomitant]
     Active Substance: CARVEDILOL
  6. HYDROCHLOROTHIAZIDE. [Concomitant]
     Active Substance: HYDROCHLOROTHIAZIDE
  7. TAMSULOSIN [Concomitant]
     Active Substance: TAMSULOSIN
     Indication: CONSTIPATION
  8. INVOKAMET XR [Suspect]
     Active Substance: CANAGLIFLOZIN\METFORMIN HYDROCHLORIDE
     Indication: PRODUCT USED FOR UNKNOWN INDICATION
     Dosage: 150-1000 MG, STARTED 2019/2020
     Route: 048
  9. AMLODIPINE [Concomitant]
     Active Substance: AMLODIPINE BESYLATE
  10. NOVOLIN NOS [Concomitant]
     Active Substance: INSULIN HUMAN

REACTIONS (1)
  - Blood glucose increased [Not Recovered/Not Resolved]

NARRATIVE: CASE EVENT DATE: 20191201
